FAERS Safety Report 13915258 (Version 3)
Quarter: 2019Q1

REPORT INFORMATION
  Report Type: Report from Study
  Country: CZ (occurrence: CZ)
  Receive Date: 20170829
  Receipt Date: 20190125
  Transmission Date: 20190417
  Serious: Yes (Other)
  Sender: FDA-Public Use
  Company Number: CZ-VELOXIS PHARMACEUTICALS-2025221

PATIENT
  Age: 59 Year
  Sex: Female

DRUGS (18)
  1. FURON [Concomitant]
     Active Substance: FUROSEMIDE
     Indication: HEPATIC CIRRHOSIS
     Dosage: 80 MG, QD
     Route: 065
     Dates: start: 201601
  2. SOLU-MEDROL [Concomitant]
     Active Substance: METHYLPREDNISOLONE SODIUM SUCCINATE
     Dosage: 500 MG, SINGLE
     Route: 065
     Dates: start: 20170803, end: 20170803
  3. LYRICA [Concomitant]
     Active Substance: PREGABALIN
     Indication: POLYNEUROPATHY
     Dosage: 150 MG, QD
     Route: 065
     Dates: start: 20170606
  4. MILURIT [Concomitant]
     Active Substance: ALLOPURINOL
     Indication: HYPERURICAEMIA
     Dosage: 100 MG, QD
     Route: 065
     Dates: start: 201601
  5. CELLCEPT [Concomitant]
     Active Substance: MYCOPHENOLATE MOFETIL\MYCOPHENOLATE MOFETIL HYDROCHLORIDE
     Dosage: 1000 MG, SINGLE
     Dates: start: 20170803, end: 20170803
  6. TRANSMETIL [Concomitant]
     Active Substance: ADEMETIONINE
     Indication: LIVER DISORDER
     Dosage: 1 MG, QD
     Route: 065
     Dates: start: 201601
  7. URSOSAN [Concomitant]
     Active Substance: URSODIOL
     Indication: LIVER DISORDER
     Dosage: 500 MG, QD
     Route: 065
     Dates: start: 201601
  8. VEROSPIRON [Concomitant]
     Active Substance: SPIRONOLACTONE
     Indication: HEPATIC CIRRHOSIS
     Dosage: 75 MG, QD
     Route: 065
     Dates: start: 201601
  9. LAGOSA [Concomitant]
     Active Substance: DIETARY SUPPLEMENT\HERBALS\MILK THISTLE
     Indication: LIVER DISORDER
     Dosage: 300 MG, QD
     Route: 065
     Dates: start: 201601
  10. CELLCEPT [Concomitant]
     Active Substance: MYCOPHENOLATE MOFETIL\MYCOPHENOLATE MOFETIL HYDROCHLORIDE
     Indication: LIVER TRANSPLANT
     Dosage: 2000 MG, QD
     Route: 065
     Dates: start: 20170803
  11. ENVARSUS XR [Suspect]
     Active Substance: TACROLIMUS
     Indication: LIVER TRANSPLANT
     Dosage: 8.5 MG, QD
     Route: 048
     Dates: start: 20170804, end: 20170809
  12. FURON [Concomitant]
     Active Substance: FUROSEMIDE
     Indication: ASCITES
  13. KANAVIT [Concomitant]
     Indication: COAGULOPATHY
     Dosage: 60 GTT, QD
     Route: 065
     Dates: start: 201601
  14. VEROSPIRON [Concomitant]
     Active Substance: SPIRONOLACTONE
     Indication: ASCITES
  15. SOLU-MEDROL [Concomitant]
     Active Substance: METHYLPREDNISOLONE SODIUM SUCCINATE
     Dosage: 875 MG, QD
     Route: 065
     Dates: start: 20170804, end: 20170807
  16. CARVESAN [Concomitant]
     Indication: PORTAL HYPERTENSION
     Dosage: 12.5 MG, QD
     Route: 065
     Dates: start: 201601
  17. HELICID [Concomitant]
     Active Substance: OMEPRAZOLE
     Indication: GASTROINTESTINAL DISORDER
     Dosage: 40 MG, QD
     Route: 065
     Dates: start: 201601
  18. SOLU-MEDROL [Concomitant]
     Active Substance: METHYLPREDNISOLONE SODIUM SUCCINATE
     Indication: IMMUNE TOLERANCE INDUCTION
     Dosage: 125 MG, QD
     Route: 065
     Dates: end: 20170803

REACTIONS (3)
  - Head injury [Recovered/Resolved]
  - Epilepsy [Recovered/Resolved]
  - Fall [Recovered/Resolved]

NARRATIVE: CASE EVENT DATE: 20170809
